FAERS Safety Report 8339563 (Version 2)
Quarter: 2016Q1

REPORT INFORMATION
  Report Type: Report from Study
  Country: US (occurrence: US)
  Receive Date: 20120117
  Receipt Date: 20160211
  Transmission Date: 20160526
  Serious: Yes (Death)
  Sender: FDA-Public Use
  Company Number: US-ROCHE-1028147

PATIENT
  Sex: Female

DRUGS (28)
  1. RITUXAN [Suspect]
     Active Substance: RITUXIMAB
     Indication: BREAST CANCER
     Route: 042
  2. HYDROCODONE BITARTRATE. [Concomitant]
     Active Substance: HYDROCODONE BITARTRATE
     Route: 048
  3. FLEXERIL [Concomitant]
     Active Substance: CYCLOBENZAPRINE HYDROCHLORIDE
     Route: 065
  4. RALTEGRAVIR. [Concomitant]
     Active Substance: RALTEGRAVIR
     Route: 065
  5. ACETAMINOPHEN. [Concomitant]
     Active Substance: ACETAMINOPHEN
     Route: 048
  6. RITUXAN [Suspect]
     Active Substance: RITUXIMAB
     Route: 042
     Dates: end: 20100301
  7. PREDNISONE. [Concomitant]
     Active Substance: PREDNISONE
     Route: 048
  8. LORTAB (UNITED STATES) [Concomitant]
     Dosage: 7.5 MG/500 MG EQUIVALENT
     Route: 048
  9. HYDROCORTISONE. [Concomitant]
     Active Substance: HYDROCORTISONE
     Route: 037
  10. EPINEPHRINE. [Concomitant]
     Active Substance: EPINEPHRINE
     Dosage: 1 MG/ML
     Route: 042
  11. BACTRIM DS [Concomitant]
     Active Substance: SULFAMETHOXAZOLE\TRIMETHOPRIM
     Route: 048
  12. ACETAMINOPHEN. [Concomitant]
     Active Substance: ACETAMINOPHEN
     Route: 048
  13. COLACE [Concomitant]
     Active Substance: DOCUSATE SODIUM
     Dosage: AT NIGHT
     Route: 065
  14. CYCLOBENZAPRINE [Concomitant]
     Active Substance: CYCLOBENZAPRINE
     Route: 065
  15. RITUXAN [Suspect]
     Active Substance: RITUXIMAB
     Route: 042
  16. RITUXAN [Suspect]
     Active Substance: RITUXIMAB
     Route: 042
  17. BENADRYL [Concomitant]
     Active Substance: DIPHENHYDRAMINE HYDROCHLORIDE
     Indication: INSOMNIA
     Dosage: AT NIGHT
     Route: 065
  18. METHYLPREDNISOLONE. [Concomitant]
     Active Substance: METHYLPREDNISOLONE
     Route: 042
  19. RITUXAN [Suspect]
     Active Substance: RITUXIMAB
     Route: 042
  20. PREDNISONE. [Concomitant]
     Active Substance: PREDNISONE
     Dosage: OPTHALAMIC (2 DROPS)
     Route: 065
  21. BACTRIM DS [Concomitant]
     Active Substance: SULFAMETHOXAZOLE\TRIMETHOPRIM
     Route: 048
  22. MORPHINE [Concomitant]
     Active Substance: MORPHINE
     Route: 042
  23. ONDANSETRON [Concomitant]
     Active Substance: ONDANSETRON
     Route: 042
  24. HYDROCODONE BITARTRATE. [Concomitant]
     Active Substance: HYDROCODONE BITARTRATE
     Route: 048
  25. LORTAB (UNITED STATES) [Concomitant]
     Indication: PAIN
     Dosage: 7.5 MG/500 MG EQUIVALENT
     Route: 048
  26. VINCRISTINE [Concomitant]
     Active Substance: VINCRISTINE
     Route: 042
  27. MORPHINE [Concomitant]
     Active Substance: MORPHINE
     Route: 048
  28. RITONAVIR. [Concomitant]
     Active Substance: RITONAVIR
     Route: 048

REACTIONS (1)
  - Death [Fatal]
